FAERS Safety Report 6594414-1 (Version None)
Quarter: 2010Q1

REPORT INFORMATION
  Report Type: 
  Country: None (occurrence: None)
  Receive Date: 20100222
  Receipt Date: 20100215
  Transmission Date: 20100710
  Serious: Yes (Life-Threatening, Hospitalization, Disabling)
  Sender: FDA-Public Use
  Company Number: B0633625A

PATIENT
  Age: 28 Year
  Sex: Female
  Weight: 65 kg

DRUGS (2)
  1. RELENZA [Suspect]
  2. REDUCTIL [Suspect]
     Dates: start: 20080203, end: 20091127

REACTIONS (2)
  - CARDIAC FAILURE [None]
  - PRINZMETAL ANGINA [None]
